FAERS Safety Report 4682525-7 (Version None)
Quarter: 2005Q2

REPORT INFORMATION
  Report Type: 
  Country: None (occurrence: None)
  Receive Date: 20050606
  Receipt Date: 20050525
  Transmission Date: 20051028
  Serious: Yes (Hospitalization)
  Sender: FDA-Public Use
  Company Number: IT-MERCK-0505ITA00021

PATIENT
  Age: 54 Year
  Sex: Female

DRUGS (1)
  1. VIOXX [Suspect]
     Indication: BACK PAIN
     Route: 048

REACTIONS (10)
  - ABDOMINAL PAIN [None]
  - C-REACTIVE PROTEIN INCREASED [None]
  - COLITIS ISCHAEMIC [None]
  - ERYTHEMA [None]
  - GASTROINTESTINAL NECROSIS [None]
  - LARGE INTESTINAL ULCER [None]
  - LEUKOCYTOSIS [None]
  - OEDEMA MUCOSAL [None]
  - RECTAL HAEMORRHAGE [None]
  - THROMBOSIS [None]
